FAERS Safety Report 4463278-4 (Version None)
Quarter: 2004Q3

REPORT INFORMATION
  Report Type: 
  Country: None (occurrence: None)
  Receive Date: 20040930
  Receipt Date: 20040924
  Transmission Date: 20050211
  Serious: Yes (Other)
  Sender: FDA-Public Use
  Company Number: 2004018526

PATIENT
  Age: 36 Year
  Sex: Male

DRUGS (1)
  1. QUILONUM RETARD [Suspect]
     Dosage: 675MG PER DAY
     Route: 048

REACTIONS (3)
  - ELECTROCARDIOGRAM QT PROLONGED [None]
  - GAIT DISTURBANCE [None]
  - MENTAL RETARDATION SEVERITY UNSPECIFIED [None]
